FAERS Safety Report 4757177-8 (Version None)
Quarter: 2005Q3

REPORT INFORMATION
  Report Type: 
  Country: None (occurrence: None)
  Receive Date: 20050829
  Receipt Date: 20050815
  Transmission Date: 20060218
  Serious: Yes (Hospitalization)
  Sender: FDA-Public Use
  Company Number: 189021

PATIENT
  Age: 61 Year
  Sex: Female
  Weight: 74.8435 kg

DRUGS (7)
  1. AVONEX [Suspect]
     Indication: MULTIPLE SCLEROSIS
     Dosage: SEE IMAGE
     Route: 030
     Dates: start: 20020801, end: 20031201
  2. AVONEX [Suspect]
     Indication: MULTIPLE SCLEROSIS
     Dosage: SEE IMAGE
     Route: 030
     Dates: start: 20031201, end: 20040201
  3. AVONEX [Suspect]
     Indication: MULTIPLE SCLEROSIS
     Dosage: SEE IMAGE
     Route: 030
     Dates: start: 20040201
  4. ULTRAM [Concomitant]
  5. MULTI-VITAMIN [Concomitant]
  6. VITAMIN B-12 [Concomitant]
  7. TRAZODONE [Concomitant]

REACTIONS (14)
  - BALANCE DISORDER [None]
  - BLINDNESS [None]
  - FALL [None]
  - FOOT FRACTURE [None]
  - HAEMATOCRIT DECREASED [None]
  - HAEMOGLOBIN DECREASED [None]
  - HAEMORRHAGE [None]
  - HEAD INJURY [None]
  - HIP FRACTURE [None]
  - INFLUENZA LIKE ILLNESS [None]
  - MULTIPLE SCLEROSIS [None]
  - OPTIC NEURITIS [None]
  - STAPHYLOCOCCAL INFECTION [None]
  - STRESS [None]
